FAERS Safety Report 11847175 (Version 1)
Quarter: 2015Q4

REPORT INFORMATION
  Report Type: Spontaneous
  Country: US (occurrence: US)
  Receive Date: 20151217
  Receipt Date: 20151217
  Transmission Date: 20160305
  Serious: No
  Sender: FDA-Public Use
  Company Number: US-ROCHE-1521053

PATIENT
  Age: 10 Year
  Sex: Female

DRUGS (1)
  1. TAMIFLU [Suspect]
     Active Substance: OSELTAMIVIR PHOSPHATE
     Indication: INFLUENZA
     Dosage: 10 ML TWICE DAILY FOR 5 DAYS
     Route: 048
     Dates: start: 20150110, end: 20150113

REACTIONS (3)
  - Confusional state [Recovered/Resolved]
  - Epistaxis [Recovering/Resolving]
  - Vomiting [Recovering/Resolving]
